FAERS Safety Report 25967860 (Version 2)
Quarter: 2025Q4

REPORT INFORMATION
  Report Type: Spontaneous
  Country: EU (occurrence: EU)
  Receive Date: 20251028
  Receipt Date: 20251110
  Transmission Date: 20260117
  Serious: Yes (Other)
  Sender: AUROBINDO
  Company Number: EU-GSK-FR2025GSK093038

PATIENT
  Age: 72 Year
  Sex: Female

DRUGS (3)
  1. CARBOPLATIN [Suspect]
     Active Substance: CARBOPLATIN
     Indication: Endometrial cancer
     Dosage: UNK
     Route: 042
     Dates: start: 20250522
  2. PACLITAXEL [Suspect]
     Active Substance: PACLITAXEL
     Indication: Endometrial cancer
     Dosage: UNK
     Route: 042
     Dates: start: 20250522
  3. DOSTARLIMAB [Suspect]
     Active Substance: DOSTARLIMAB
     Indication: Endometrial cancer
     Dosage: 500 MILLIGRAM
     Route: 042
     Dates: start: 20250522

REACTIONS (3)
  - Pneumothorax [Not Recovered/Not Resolved]
  - Haemorrhoids [Recovering/Resolving]
  - Proctitis [Recovering/Resolving]

NARRATIVE: CASE EVENT DATE: 20250522
